FAERS Safety Report 23570451 (Version 1)
Quarter: 2024Q1

REPORT INFORMATION
  Report Type: Spontaneous
  Country: CH (occurrence: CH)
  Receive Date: 20240227
  Receipt Date: 20240227
  Transmission Date: 20240409
  Serious: Yes (Death, Other)
  Sender: FDA-Public Use
  Company Number: None

PATIENT
  Age: 73 Year
  Sex: Female

DRUGS (2)
  1. IOPAMIRO [Suspect]
     Active Substance: IOPAMIDOL
     Dosage: 370 MG/ML
     Route: 042
     Dates: start: 20240206, end: 20240206
  2. MIDAZOLAM HYDROCHLORIDE [Suspect]
     Active Substance: MIDAZOLAM HYDROCHLORIDE
     Dosage: 2 MG
     Route: 042
     Dates: start: 20240206, end: 20240206

REACTIONS (3)
  - Seizure [Fatal]
  - Apnoea [Fatal]
  - Bradycardia [Fatal]

NARRATIVE: CASE EVENT DATE: 20240206
